FAERS Safety Report 6371173-9 (Version None)
Quarter: 2009Q3

REPORT INFORMATION
  Report Type: 
  Country: None (occurrence: None)
  Receive Date: 20090923
  Receipt Date: 20070808
  Transmission Date: 20100115
  Serious: Yes (Hospitalization, Other)
  Sender: FDA-Public Use
  Company Number: US-ASTRAZENECA-2007UW02035

PATIENT
  Age: 52 Year
  Sex: Female
  Weight: 79.4 kg

DRUGS (14)
  1. SEROQUEL [Suspect]
     Indication: DEPRESSION
     Dosage: 50-100 MG AT NIGHT
     Route: 048
     Dates: start: 19990201
  2. SEROQUEL [Suspect]
     Dosage: 100 MG - 200 MG
     Route: 048
     Dates: start: 19990525
  3. PREVACID [Concomitant]
     Dates: start: 20000115
  4. PAXIL [Concomitant]
     Dosage: 20 MG DAILY, 30 MG DAILY, 37.5 MG DAILY
     Route: 048
     Dates: start: 19990201
  5. BUSPAR [Concomitant]
     Indication: ANXIETY
     Dates: start: 19940824
  6. BUSPAR [Concomitant]
     Indication: CRANIAL NERVE DISORDER
     Dates: start: 19940824
  7. XANAX [Concomitant]
     Dates: start: 19991001
  8. MECLIZINE [Concomitant]
     Dates: start: 20001227
  9. ESTRADIOL [Concomitant]
     Dates: start: 20001227
  10. CELEBREX [Concomitant]
     Dates: start: 20040326
  11. ASPIRIN [Concomitant]
     Dates: start: 20040326
  12. ZYRTEC [Concomitant]
     Dosage: 5 MG EVERY MORNING, 10 MG DAILY
     Dates: start: 20040326
  13. ESTROGEN [Concomitant]
     Dates: start: 20001001
  14. CLONAZEPAM [Concomitant]
     Dates: start: 20030226

REACTIONS (9)
  - BLOOD CHOLESTEROL INCREASED [None]
  - BLOOD TRIGLYCERIDES INCREASED [None]
  - CATARACT [None]
  - DIABETES MELLITUS INADEQUATE CONTROL [None]
  - HYPERLIPIDAEMIA [None]
  - HYSTERECTOMY [None]
  - PANCREATITIS ACUTE [None]
  - PANIC ATTACK [None]
  - TYPE 2 DIABETES MELLITUS [None]
